FAERS Safety Report 10103503 (Version 1)
Quarter: 2014Q2

REPORT INFORMATION
  Report Type: Spontaneous
  Country: US (occurrence: US)
  Receive Date: 20140424
  Receipt Date: 20140424
  Transmission Date: 20141212
  Serious: No
  Sender: FDA-Public Use
  Company Number: US-BRISTOL-MYERS SQUIBB COMPANY-20468526

PATIENT
  Age: 67 Year
  Sex: Female

DRUGS (9)
  1. ELIQUIS [Suspect]
     Indication: ATRIAL FIBRILLATION
     Dates: start: 20140307
  2. BABY ASPIRIN [Concomitant]
  3. METFORMIN [Concomitant]
  4. ATENOLOL [Concomitant]
  5. LISINOPRIL [Concomitant]
  6. GLIMEPIRIDE [Concomitant]
  7. HYDROCHLOROTHIAZIDE [Concomitant]
  8. SIMVASTATIN [Concomitant]
  9. CEPHALOSPORIN [Concomitant]
     Indication: INFECTION

REACTIONS (1)
  - Dizziness [Not Recovered/Not Resolved]
